FAERS Safety Report 22098642 (Version 1)
Quarter: 2023Q1

REPORT INFORMATION
  Report Type: Spontaneous
  Country: IN (occurrence: IN)
  Receive Date: 20230315
  Receipt Date: 20230315
  Transmission Date: 20230417
  Serious: Yes (Life-Threatening, Hospitalization)
  Sender: FDA-Public Use
  Company Number: IN-LUPIN PHARMACEUTICALS INC.-2023-01975

PATIENT
  Age: 18 Year
  Sex: Female

DRUGS (8)
  1. LEVETIRACETAM [Suspect]
     Active Substance: LEVETIRACETAM
     Indication: Thrombosis with thrombocytopenia syndrome
     Dosage: 500 MG, BID-INFUSION
     Route: 065
     Dates: start: 202106
  2. NOREPINEPHRINE [Suspect]
     Active Substance: NOREPINEPHRINE
     Indication: Thrombosis with thrombocytopenia syndrome
     Dosage: UNK
     Route: 065
     Dates: start: 202106
  3. DOPAMINE [Suspect]
     Active Substance: DOPAMINE HYDROCHLORIDE
     Indication: Thrombosis with thrombocytopenia syndrome
     Dosage: UNK-INFUSION AT 5 ML/HOUR RATE
     Route: 065
     Dates: start: 202106
  4. HEPARIN [Suspect]
     Active Substance: HEPARIN SODIUM
     Indication: Thrombosis with thrombocytopenia syndrome
     Dosage: 5000 INTERNATIONAL UNIT, TID (5000 UNIT EVERY 8 HOURS)
     Route: 065
     Dates: start: 202106
  5. PIPERACILLIN SODIUM\TAZOBACTAM SODIUM [Suspect]
     Active Substance: PIPERACILLIN SODIUM\TAZOBACTAM SODIUM
     Indication: Thrombosis with thrombocytopenia syndrome
     Dosage: 500 MG, TID
     Route: 065
     Dates: start: 202106
  6. MANNITOL [Suspect]
     Active Substance: MANNITOL
     Indication: Thrombosis with thrombocytopenia syndrome
     Dosage: 100 MG, QD INFUSION
     Route: 065
     Dates: start: 202106
  7. FOLVITE [Suspect]
     Active Substance: FOLIC ACID
     Indication: Thrombosis with thrombocytopenia syndrome
     Dosage: 10 MG, QD
     Route: 065
     Dates: start: 202106
  8. VITAMIN B12 [Suspect]
     Active Substance: CYANOCOBALAMIN
     Indication: Thrombosis with thrombocytopenia syndrome
     Dosage: UNK UNK, QD
     Route: 065
     Dates: start: 202106

REACTIONS (2)
  - Drug ineffective for unapproved indication [Unknown]
  - Off label use [Unknown]

NARRATIVE: CASE EVENT DATE: 20210601
